FAERS Safety Report 9924040 (Version 1)
Quarter: 2014Q1

REPORT INFORMATION
  Report Type: Report from Study
  Country: FR (occurrence: FR)
  Receive Date: 20140225
  Receipt Date: 20140225
  Transmission Date: 20141002
  Serious: Yes (Hospitalization, Other)
  Sender: FDA-Public Use
  Company Number: FR-ROCHE-1350941

PATIENT
  Sex: Female

DRUGS (6)
  1. RITUXIMAB [Suspect]
     Indication: RHEUMATOID ARTHRITIS
     Dosage: FREQUENCY : DAY 1 AND DAY 15.
     Route: 041
     Dates: start: 20080428
  2. NOVATREX [Concomitant]
     Route: 065
     Dates: start: 20080428
  3. CORTANCYL [Concomitant]
     Dosage: DOSE : 20 THEN 10 MG/DAY.
     Route: 065
     Dates: start: 20080428
  4. CORTANCYL [Concomitant]
     Dosage: DOSE : 10 THEN 7.5 MG/DAY
     Route: 065
     Dates: start: 20090226
  5. CORTANCYL [Concomitant]
     Route: 065
     Dates: start: 20100520
  6. CORTANCYL [Concomitant]
     Route: 065
     Dates: start: 20110606

REACTIONS (10)
  - Diverticulum intestinal [Recovered/Resolved]
  - Disorientation [Unknown]
  - Large intestine polyp [Recovered/Resolved]
  - Dyspepsia [Unknown]
  - Bronchitis [Recovered/Resolved]
  - Diarrhoea [Recovered/Resolved]
  - Vomiting [Recovered/Resolved]
  - Systemic lupus erythematosus [Unknown]
  - Tinea versicolour [Recovered/Resolved]
  - Tooth infection [Recovered/Resolved]
